FAERS Safety Report 7124753-7 (Version None)
Quarter: 2010Q4

REPORT INFORMATION
  Report Type: 
  Country: None (occurrence: None)
  Receive Date: 20101123
  Receipt Date: 20101123
  Transmission Date: 20110411
  Serious: Yes (Hospitalization)
  Sender: FDA-Public Use
  Company Number: None

PATIENT
  Age: 84 Year
  Sex: Female

DRUGS (5)
  1. CARVEDILOL [Suspect]
     Indication: CARDIAC FAILURE
     Dosage: 6.25MG BID PO
     Route: 048
  2. NITROGLYCERIN [Concomitant]
  3. COUMADIN [Concomitant]
  4. ALPRAZOLAM [Concomitant]
  5. FUROSEMIDE [Concomitant]

REACTIONS (3)
  - ASTHENIA [None]
  - FALL [None]
  - GENERAL PHYSICAL HEALTH DETERIORATION [None]
